FAERS Safety Report 6976893-0 (Version None)
Quarter: 2010Q3

REPORT INFORMATION
  Report Type: 
  Country: None (occurrence: None)
  Receive Date: 20100910
  Receipt Date: 20100907
  Transmission Date: 20110219
  Serious: Yes (Hospitalization)
  Sender: FDA-Public Use
  Company Number: Z0002074B

PATIENT
  Sex: Male
  Weight: 78.8 kg

DRUGS (2)
  1. PAZOPANIB [Suspect]
     Indication: RENAL CELL CARCINOMA
     Route: 048
     Dates: start: 20090910
  2. LOW MOLECULAR WEIGHT HEPARIN [Concomitant]
     Route: 058
     Dates: start: 20100720

REACTIONS (1)
  - PULMONARY EMBOLISM [None]
